FAERS Safety Report 9343949 (Version 1)
Quarter: 2013Q2

REPORT INFORMATION
  Report Type: Spontaneous
  Country: FR (occurrence: FR)
  Receive Date: 20130612
  Receipt Date: 20130612
  Transmission Date: 20140414
  Serious: Yes (Other)
  Sender: FDA-Public Use
  Company Number: FR-ROCHE-1233487

PATIENT
  Age: 45 Year
  Sex: Female

DRUGS (10)
  1. ROCEPHINE [Suspect]
     Indication: PRODUCT USED FOR UNKNOWN INDICATION
     Dosage: DAILY
     Route: 042
     Dates: start: 20130415, end: 20130419
  2. ROVAMYCINE [Suspect]
     Indication: PRODUCT USED FOR UNKNOWN INDICATION
     Route: 042
     Dates: start: 20130415, end: 20130418
  3. CALCIPARINE [Concomitant]
     Route: 058
     Dates: start: 20130415
  4. LASILIX [Concomitant]
     Route: 042
     Dates: start: 20130415
  5. GLIMEPIRIDE [Concomitant]
     Route: 048
  6. GLIMEPIRIDE [Concomitant]
     Route: 048
  7. GLUCOR [Concomitant]
     Route: 048
  8. RAMIPRIL [Concomitant]
     Route: 048
  9. PERFALGAN [Concomitant]
     Route: 042
     Dates: start: 20130416, end: 20130417
  10. PERFALGAN [Concomitant]
     Route: 042
     Dates: start: 20130417, end: 20130417

REACTIONS (1)
  - Hepatitis [Recovered/Resolved]
